FAERS Safety Report 8158859-0 (Version None)
Quarter: 2012Q1

REPORT INFORMATION
  Report Type: 
  Country: None (occurrence: None)
  Receive Date: 20120223
  Receipt Date: 20120220
  Transmission Date: 20120608
  Serious: Yes (Other)
  Sender: FDA-Public Use
  Company Number: US-PFIZER INC-2012022595

PATIENT
  Sex: Female
  Weight: 59 kg

DRUGS (23)
  1. LYRICA [Suspect]
     Indication: SYSTEMIC LUPUS ERYTHEMATOSUS
  2. NEURONTIN [Suspect]
     Indication: SYSTEMIC LUPUS ERYTHEMATOSUS
  3. LOMOTIL [Concomitant]
     Indication: DIARRHOEA
     Dosage: UNK, AS NEEDED
  4. LISINOPRIL [Concomitant]
     Indication: HYPERTENSION
     Dosage: 5 MG, DAILY
  5. NEURONTIN [Suspect]
     Indication: INTERVERTEBRAL DISC DEGENERATION
  6. LYRICA [Suspect]
     Indication: FIBROMYALGIA
     Dosage: 150MG/DAY (50 MG THREE TIMES A DAY OR 75 MG TWO TIMES A DAY)
     Dates: start: 20090301
  7. NEURONTIN [Suspect]
     Indication: OSTEOARTHRITIS
  8. AMBIEN [Concomitant]
     Dosage: UNK
  9. LYRICA [Suspect]
     Indication: INTERVERTEBRAL DISC DEGENERATION
  10. LYRICA [Suspect]
     Indication: OSTEOARTHRITIS
  11. LYRICA [Suspect]
     Indication: OSTEOPOROSIS
  12. ZOLOFT [Concomitant]
     Dosage: UNK
  13. PRILOSEC [Concomitant]
     Indication: GASTROOESOPHAGEAL REFLUX DISEASE
     Dosage: UNK
  14. LYRICA [Suspect]
     Indication: NEUROPATHY PERIPHERAL
  15. NEURONTIN [Suspect]
     Indication: FIBROMYALGIA
     Dosage: 800 MG, 3X/DAY
     Route: 048
     Dates: start: 20111228, end: 20120113
  16. PREMARIN [Suspect]
     Dosage: 1.25 MG, DAILY
  17. PROMETHAZINE [Concomitant]
     Dosage: UNK
  18. LYRICA [Suspect]
     Indication: PAIN
  19. NEURONTIN [Suspect]
     Indication: NEUROPATHY PERIPHERAL
  20. NEURONTIN [Suspect]
     Indication: OSTEOPOROSIS
  21. LYRICA [Suspect]
     Indication: RHEUMATOID ARTHRITIS
  22. NEURONTIN [Suspect]
     Indication: PAIN
  23. NEURONTIN [Suspect]
     Indication: RHEUMATOID ARTHRITIS

REACTIONS (7)
  - GAIT DISTURBANCE [None]
  - PYREXIA [None]
  - NAUSEA [None]
  - HEADACHE [None]
  - WEIGHT DECREASED [None]
  - DRUG INEFFECTIVE [None]
  - MIGRAINE [None]
